FAERS Safety Report 4843943-7 (Version None)
Quarter: 2005Q4

REPORT INFORMATION
  Report Type: 
  Country: None (occurrence: None)
  Receive Date: 20051202
  Receipt Date: 20050927
  Transmission Date: 20060501
  Serious: No
  Sender: FDA-Public Use
  Company Number: US-GLAXOSMITHKLINE-A0576089A

PATIENT
  Age: 41 Year
  Sex: Male

DRUGS (1)
  1. AUGMENTIN [Suspect]
     Dosage: 250MG FOUR TIMES PER DAY
     Route: 048
     Dates: start: 20050701, end: 20050701

REACTIONS (2)
  - GENITAL RASH [None]
  - RASH [None]
